FAERS Safety Report 5408252-6 (Version None)
Quarter: 2007Q3

REPORT INFORMATION
  Report Type: 
  Country: None (occurrence: None)
  Receive Date: 20070806
  Receipt Date: 20070806
  Transmission Date: 20080115
  Serious: Yes (Hospitalization)
  Sender: FDA-Public Use
  Company Number: None

PATIENT
  Sex: Male

DRUGS (1)
  1. NYQUIL, FORM/VERSION/FLAVOR UNKNOWN(ETHANOL UNKNOWN, UNK, CHLORPHENAMI [Suspect]
     Indication: INFLUENZA
     Dosage: ORAL
     Route: 048

REACTIONS (4)
  - DYSPNOEA [None]
  - HEART RATE INCREASED [None]
  - HEPATIC FAILURE [None]
  - OVERDOSE [None]
